FAERS Safety Report 8172501-4 (Version None)
Quarter: 2012Q1

REPORT INFORMATION
  Report Type: 
  Country: None (occurrence: None)
  Receive Date: 20120227
  Receipt Date: 20120227
  Transmission Date: 20120608
  Serious: Yes (Life-Threatening)
  Sender: FDA-Public Use
  Company Number: None

PATIENT
  Age: 61 Year
  Sex: Female
  Weight: 72.8 kg

DRUGS (3)
  1. CHLORZOXAZONE [Suspect]
     Indication: PAIN
     Dosage: 1 UNIT/DAY PO
     Route: 048
     Dates: end: 20110412
  2. CHLORZOXAZONE [Suspect]
     Indication: TEMPOROMANDIBULAR JOINT SYNDROME
     Dosage: 1 UNIT/DAY PO
     Route: 048
     Dates: end: 20110412
  3. LEVOTHYROXINE SODIUM [Concomitant]

REACTIONS (5)
  - ENCEPHALOPATHY [None]
  - GASTROENTERITIS VIRAL [None]
  - LIVER TRANSPLANT [None]
  - ACUTE HEPATIC FAILURE [None]
  - ABDOMINAL PAIN UPPER [None]
